FAERS Safety Report 9705474 (Version 2)
Quarter: 2013Q4

REPORT INFORMATION
  Report Type: Spontaneous
  Country: FR (occurrence: FR)
  Receive Date: 20131122
  Receipt Date: 20131126
  Transmission Date: 20140711
  Serious: Yes (Death)
  Sender: FDA-Public Use
  Company Number: FR-ABBVIE-13P-056-1171727-00

PATIENT
  Age: 71 Year
  Sex: Male

DRUGS (3)
  1. ENANTONE [Suspect]
     Indication: PRODUCT USED FOR UNKNOWN INDICATION
     Route: 030
  2. ANTI-ANDROGENS [Suspect]
     Indication: PROSTATE CANCER METASTATIC
     Dosage: ENTERAL
     Dates: start: 20130719, end: 20130805
  3. CRESTOR [Concomitant]
     Indication: PRODUCT USED FOR UNKNOWN INDICATION
     Dates: end: 20130719

REACTIONS (1)
  - Completed suicide [Fatal]
